FAERS Safety Report 8911666 (Version 1)
Quarter: 2012Q4

REPORT INFORMATION
  Report Type: 
  Country: US (occurrence: US)
  Receive Date: 20121115
  Receipt Date: 20121115
  Transmission Date: 20130627
  Serious: Yes (Hospitalization)
  Sender: FDA-Public Use
  Company Number: US-PFIZER INC-2012284381

PATIENT
  Age: 69 Year
  Sex: Female
  Weight: 79.37 kg

DRUGS (6)
  1. LYRICA [Suspect]
     Indication: FIBROMYALGIA
     Dosage: 75 mg, 1x/day
     Route: 048
  2. MORPHINE [Concomitant]
     Dosage: 15 mg, 3x/day
  3. ACETAMINOPHEN/OXYCODONE [Concomitant]
     Dosage: 325/10 mg, 2x/day
  4. CYCLOBENZAPRINE [Concomitant]
     Dosage: 10 mg, 2x/day
  5. SIMVASTATIN [Concomitant]
     Dosage: 40 mg, 1x/day
  6. ATENOLOL [Concomitant]
     Dosage: 25 mg, 1x/day

REACTIONS (4)
  - Pneumonia [Unknown]
  - Thrombosis [Unknown]
  - Blood test abnormal [Unknown]
  - Blood disorder [Unknown]
